FAERS Safety Report 21761508 (Version 1)
Quarter: 2022Q4

REPORT INFORMATION
  Report Type: Report from Study
  Country: US (occurrence: US)
  Receive Date: 20221221
  Receipt Date: 20221221
  Transmission Date: 20230112
  Serious: Yes (Other)
  Sender: FDA-Public Use
  Company Number: US-JAZZ-2022-US-038014

PATIENT
  Sex: Male
  Weight: 111 kg

DRUGS (20)
  1. XYREM [Suspect]
     Active Substance: SODIUM OXYBATE
     Indication: Narcolepsy
     Dosage: 3 GRAM, BID
     Dates: start: 2017, end: 2019
  2. XYREM [Suspect]
     Active Substance: SODIUM OXYBATE
     Indication: Cataplexy
     Dosage: 2.25 GRAM, QD
  3. XYREM [Suspect]
     Active Substance: SODIUM OXYBATE
     Dosage: 3 GRAM, QD
  4. ADDERALL [Concomitant]
     Active Substance: AMPHETAMINE ASPARTATE\AMPHETAMINE SULFATE\DEXTROAMPHETAMINE SACCHARATE\DEXTROAMPHETAMINE SULFATE
     Dosage: UNK
     Dates: start: 20160113
  5. VITAMINS [Concomitant]
     Active Substance: VITAMINS
     Dosage: UNK
     Dates: start: 20160113
  6. GARLIC [Concomitant]
     Active Substance: GARLIC
     Dosage: UNK
     Dates: start: 20160113
  7. ALCOHOL [Concomitant]
     Active Substance: ALCOHOL
     Dosage: UNK
     Dates: start: 20160113
  8. COD LIVER OIL [Concomitant]
     Active Substance: COD LIVER OIL
     Dosage: UNK
     Dates: start: 20170322
  9. MAGNESIUM OXIDE [Concomitant]
     Active Substance: MAGNESIUM OXIDE
     Dosage: UNK
     Dates: start: 20170322
  10. VITAMIN C [Concomitant]
     Active Substance: ASCORBIC ACID
     Dosage: UNK
     Dates: start: 20170322
  11. CAYENNE PEPPER [Concomitant]
     Active Substance: CAPSICUM
     Dosage: UNK
     Dates: start: 20170501
  12. VITAMIN D3 [Concomitant]
     Active Substance: CHOLECALCIFEROL
     Dosage: UNK
     Dates: start: 20170501
  13. GINKGO BILOBA MK [Concomitant]
     Dosage: UNK
     Dates: start: 20170501
  14. COPPER [Concomitant]
     Active Substance: COPPER
     Dosage: UNK
     Dates: start: 20170501
  15. LEXAPRO [Concomitant]
     Active Substance: ESCITALOPRAM OXALATE
  16. MUCINEX [Concomitant]
     Active Substance: GUAIFENESIN
  17. ZOLPIDEM [Concomitant]
     Active Substance: ZOLPIDEM TARTRATE
  18. FLUTICASONE [Concomitant]
     Active Substance: FLUTICASONE
  19. TESTOSTERONE [Concomitant]
     Active Substance: TESTOSTERONE
  20. SUDAFED 12 HOUR [Concomitant]
     Active Substance: PSEUDOEPHEDRINE HYDROCHLORIDE

REACTIONS (3)
  - Choking [Unknown]
  - Adverse drug reaction [Unknown]
  - Weight decreased [Unknown]
